FAERS Safety Report 8936793 (Version 2)
Quarter: 2012Q4

REPORT INFORMATION
  Report Type: 
  Country: JP (occurrence: JP)
  Receive Date: 20121130
  Receipt Date: 20121227
  Transmission Date: 20130627
  Serious: Yes (Death)
  Sender: FDA-Public Use
  Company Number: JP-OTSUKA-JP-2012-16952

PATIENT
  Age: 72 Year
  Sex: Male

DRUGS (12)
  1. SAMSCA [Suspect]
     Indication: SMALL CELL LUNG CANCER STAGE UNSPECIFIED
     Dosage: 7.5 Mg milligram(s), daily dose
     Route: 048
     Dates: start: 20120806, end: 20120807
  2. MOZAVAPTAN HYDROCHLORIDE [Suspect]
     Indication: INAPPROPRIATE ANTIDIURETIC HORMONE SECRETION
     Dosage: 30 Mg milligram(s), qd
     Route: 048
     Dates: start: 20120730, end: 20120805
  3. LASIX [Concomitant]
     Indication: SMALL CELL LUNG CANCER STAGE UNSPECIFIED
     Dosage: 20 Mg milligram(s), daily dose
     Route: 042
     Dates: start: 20120703, end: 20120729
  4. FOSMICIN [Concomitant]
     Indication: PROPHYLAXIS
     Dosage: 1500 Mg milligram(s), daily dose
     Route: 048
     Dates: start: 20120704, end: 20120808
  5. BIOFERMIN R [Concomitant]
     Indication: PROPHYLAXIS
     Dosage: 18 Mg milligram(s), daily dose
     Route: 048
     Dates: start: 20120704, end: 20120808
  6. PHELLOBERIN [Concomitant]
     Indication: PROPHYLAXIS
     Dosage: 6 DF dosage form, daily dose
     Route: 048
     Dates: start: 20120704, end: 20120808
  7. NAUZELIN [Concomitant]
     Indication: PROPHYLAXIS
     Dosage: 30 Mg milligram(s), daily dose
     Route: 048
     Dates: start: 20120704, end: 20120808
  8. HOCHUUEKKITOU [Concomitant]
     Indication: PROPHYLAXIS
     Dosage: 7.5 G gram(s), daily dose
     Route: 048
     Dates: start: 20120704, end: 20120808
  9. OMEPRAL [Concomitant]
     Indication: PROPHYLAXIS
     Dosage: 10 Mg milligram(s), daily dose
     Route: 048
     Dates: start: 20120704, end: 20120808
  10. LENDORMIN [Concomitant]
     Indication: PROPHYLAXIS
     Dosage: 0.25 Mg milligram(s), daily dose
     Route: 048
     Dates: start: 20120723, end: 20120808
  11. PARAPLATIN [Concomitant]
     Indication: SMALL CELL LUNG CANCER STAGE UNSPECIFIED
     Dosage: 150 Mg milligram(s), daily dose
     Route: 042
     Dates: start: 20120731, end: 20120731
  12. VEPESID [Concomitant]
     Indication: SMALL CELL LUNG CANCER STAGE UNSPECIFIED
     Dosage: 100 Mg milligram(s), daily dose
     Route: 042
     Dates: start: 20120731, end: 20120802

REACTIONS (1)
  - Small cell lung cancer [Fatal]
